FAERS Safety Report 10154060 (Version 1)
Quarter: 2014Q2

REPORT INFORMATION
  Report Type: Spontaneous
  Country: US (occurrence: None)
  Receive Date: 20140502
  Receipt Date: 20140502
  Transmission Date: 20141212
  Serious: Yes (Death)
  Sender: FDA-Public Use
  Company Number: ADR-2014-00733

PATIENT
  Age: 73 Year
  Sex: Female

DRUGS (4)
  1. BACLOFEN [Suspect]
     Dosage: /DAY
  2. DILAUDID [Suspect]
     Dosage: /DAY
  3. BUPIVACAINE [Suspect]
  4. CLONIDINE [Suspect]

REACTIONS (2)
  - Endometrial cancer [None]
  - Condition aggravated [None]
